FAERS Safety Report 5021329-2 (Version None)
Quarter: 2006Q2

REPORT INFORMATION
  Report Type: 
  Country: None (occurrence: None)
  Receive Date: 20060608
  Receipt Date: 20050725
  Transmission Date: 20061013
  Serious: No
  Sender: FDA-Public Use
  Company Number: US-BRISTOL-MYERS SQUIBB COMPANY-13052758

PATIENT
  Age: 81 Year
  Sex: Female

DRUGS (4)
  1. SINEMET CR [Suspect]
     Indication: RESTLESS LEGS SYNDROME
     Route: 048
     Dates: start: 20050101
  2. NEXIUM [Concomitant]
  3. NORVASC [Concomitant]
  4. ZOCOR [Concomitant]

REACTIONS (1)
  - NAUSEA [None]
